FAERS Safety Report 9311017 (Version 1)
Quarter: 2013Q2

REPORT INFORMATION
  Report Type: Report from Study
  Country: CA (occurrence: CA)
  Receive Date: 20130528
  Receipt Date: 20130528
  Transmission Date: 20140414
  Serious: Yes (Hospitalization)
  Sender: FDA-Public Use
  Company Number: CA-JNJFOC-20130516623

PATIENT
  Age: 36 Year
  Sex: Female
  Weight: 72 kg

DRUGS (8)
  1. REMICADE [Suspect]
     Indication: PSORIATIC ARTHROPATHY
     Route: 042
     Dates: start: 20100226
  2. GABAPENTIN [Concomitant]
     Route: 065
  3. FENTANYL [Concomitant]
     Route: 065
  4. OXYCODONE [Concomitant]
     Route: 065
  5. NUCYNTA [Concomitant]
     Route: 065
  6. CORTISONE [Concomitant]
     Route: 065
  7. VIMOVO [Concomitant]
     Route: 065
  8. NABILONE [Concomitant]
     Route: 065

REACTIONS (1)
  - Back pain [Recovered/Resolved]
